FAERS Safety Report 9231631 (Version 2)
Quarter: 2013Q2

REPORT INFORMATION
  Report Type: Spontaneous
  Country: US (occurrence: US)
  Receive Date: 20130415
  Receipt Date: 20130516
  Transmission Date: 20140414
  Serious: Yes (Other)
  Sender: FDA-Public Use
  Company Number: PHEH2013US008375

PATIENT
  Sex: Female

DRUGS (13)
  1. DIOVAN [Suspect]
     Dosage: 160 MG, UNK
  2. DIOVAN [Suspect]
     Dosage: 320 MG, UNK
  3. DIOVAN [Suspect]
     Dosage: 160 MG, UNK
  4. BYSTOLIC [Concomitant]
  5. WARFARIN [Concomitant]
  6. THYROXINE [Concomitant]
  7. DIGOXIN [Concomitant]
  8. ANASTROZOLE [Concomitant]
  9. DILTIAZEM [Concomitant]
  10. METOLAZONE [Concomitant]
  11. CITRACAL [Concomitant]
  12. FUROSEMIDE [Concomitant]
  13. IRON [Concomitant]

REACTIONS (5)
  - Macular degeneration [Unknown]
  - Visual acuity reduced [Unknown]
  - Impaired healing [Unknown]
  - Neoplasm malignant [Unknown]
  - Hypertension [Unknown]
